FAERS Safety Report 24826998 (Version 2)
Quarter: 2025Q1

REPORT INFORMATION
  Report Type: Spontaneous
  Country: ES (occurrence: ES)
  Receive Date: 20250109
  Receipt Date: 20250204
  Transmission Date: 20250409
  Serious: Yes (Hospitalization, Other)
  Sender: SANOFI AVENTIS
  Company Number: ES-SA-2025SA007886

PATIENT
  Sex: Male

DRUGS (11)
  1. DUPIXENT [Suspect]
     Active Substance: DUPILUMAB
     Indication: Dermatitis atopic
     Dosage: UNK UNK, QOW
     Dates: start: 20240530, end: 20240711
  2. DUPIXENT [Suspect]
     Active Substance: DUPILUMAB
     Dosage: UNK UNK, QOW
     Dates: start: 20240926, end: 2024
  3. BARICITINIB [Concomitant]
     Active Substance: BARICITINIB
     Dosage: 2 MG, QD
  4. UPADACITINIB [Concomitant]
     Active Substance: UPADACITINIB
     Dosage: 15MG; QD
     Dates: start: 20240315
  5. CLONAZEPAM [Concomitant]
     Active Substance: CLONAZEPAM
     Dosage: 1 DF, QD
  6. OLANZAPINE [Concomitant]
     Active Substance: OLANZAPINE
     Dosage: 1 DF, QD
  7. DUTASTERIDE\TAMSULOSIN HYDROCHLORIDE [Concomitant]
     Active Substance: DUTASTERIDE\TAMSULOSIN HYDROCHLORIDE
     Dosage: 1 DF, QD
  8. PREDNISONE [Concomitant]
     Active Substance: PREDNISONE
     Dosage: 10 MG, QD
  9. CHOLECALCIFEROL [Concomitant]
     Active Substance: CHOLECALCIFEROL
     Dosage: UNK UNK, QM
  10. LEVOCETIRIZINE [Concomitant]
     Active Substance: LEVOCETIRIZINE
     Indication: Pruritus
     Dosage: 5 MG, QD, AS NEEDED
  11. MUPIROCIN [Concomitant]
     Active Substance: MUPIROCIN

REACTIONS (30)
  - Encephalitis [Unknown]
  - Dermatitis exfoliative generalised [Unknown]
  - Pruritus [Unknown]
  - Erythema [Unknown]
  - Skin exfoliation [Unknown]
  - Skin abrasion [Unknown]
  - Papule [Unknown]
  - Lichenification [Unknown]
  - Skin discolouration [Unknown]
  - Hyperkeratosis [Unknown]
  - Urinary retention [Unknown]
  - Bacteraemia [Unknown]
  - Pyelonephritis [Unknown]
  - Nephritis [Unknown]
  - Hydronephrosis [Unknown]
  - Dermatitis atopic [Unknown]
  - Renal cyst [Unknown]
  - Staphylococcal infection [Unknown]
  - Adenovirus test positive [Unknown]
  - Diarrhoea [Unknown]
  - Bladder dilatation [Unknown]
  - Parakeratosis [Unknown]
  - Folliculitis [Unknown]
  - Hypoproteinaemia [Unknown]
  - Leukocytosis [Unknown]
  - Neutrophilia [Unknown]
  - Superficial inflammatory dermatosis [Unknown]
  - Phlebitis [Unknown]
  - Eosinophilia [Unknown]
  - Inappropriate schedule of product administration [Unknown]

NARRATIVE: CASE EVENT DATE: 20240101
